FAERS Safety Report 7141138-8 (Version None)
Quarter: 2010Q4

REPORT INFORMATION
  Report Type: 
  Country: None (occurrence: None)
  Receive Date: 20101122
  Receipt Date: 20101108
  Transmission Date: 20110411
  Serious: Yes (Hospitalization)
  Sender: FDA-Public Use
  Company Number: DSM-2010-01652

PATIENT
  Age: 60 Year
  Sex: Male

DRUGS (1)
  1. OLARTAN (OLMESARTAN MEDOXOMIL) (OLMESARTAN MEDOXOMIL) [Suspect]
     Indication: PRODUCT USED FOR UNKNOWN INDICATION
     Dates: start: 20090101, end: 20100101

REACTIONS (3)
  - DIZZINESS [None]
  - HEADACHE [None]
  - THROMBOCYTOPENIA [None]
